FAERS Safety Report 24841372 (Version 1)
Quarter: 2025Q1

REPORT INFORMATION
  Report Type: Spontaneous
  Country: US (occurrence: None)
  Receive Date: 20250114
  Receipt Date: 20250114
  Transmission Date: 20250409
  Serious: Yes (Hospitalization)
  Sender: FDA-CTU
  Company Number: None

PATIENT
  Age: 76 Year
  Sex: Male
  Weight: 69 kg

DRUGS (1)
  1. PREGABALIN [Suspect]
     Active Substance: PREGABALIN
     Indication: Pain
     Dosage: FREQUENCY : TWICE A DAY;?
     Route: 048

REACTIONS (9)
  - Agitation [None]
  - Lethargy [None]
  - Sedation [None]
  - Dysarthria [None]
  - Asthenia [None]
  - Pain in extremity [None]
  - Fatigue [None]
  - Cataract operation [None]
  - Aggression [None]

NARRATIVE: CASE EVENT DATE: 20240923
